FAERS Safety Report 6944120-6 (Version None)
Quarter: 2010Q3

REPORT INFORMATION
  Report Type: 
  Country: None (occurrence: None)
  Receive Date: 20100827
  Receipt Date: 20100826
  Transmission Date: 20110219
  Serious: No
  Sender: FDA-Public Use
  Company Number: US-BIOGENIDEC-2010BI028613

PATIENT
  Age: 41 Year
  Sex: Female

DRUGS (3)
  1. TYSABRI [Suspect]
     Indication: MULTIPLE SCLEROSIS
     Route: 042
     Dates: start: 20080325, end: 20080325
  2. TYSABRI [Suspect]
     Route: 042
     Dates: start: 20080729, end: 20090815
  3. TYSABRI [Suspect]
     Route: 042
     Dates: start: 20100227

REACTIONS (2)
  - ANXIETY [None]
  - MENSTRUATION IRREGULAR [None]
